FAERS Safety Report 18577982 (Version 1)
Quarter: 2020Q4

REPORT INFORMATION
  Report Type: Spontaneous
  Country: US (occurrence: US)
  Receive Date: 20201204
  Receipt Date: 20201204
  Transmission Date: 20210114
  Serious: No
  Sender: FDA-Public Use
  Company Number: US-SA-2020SA347307

PATIENT

DRUGS (1)
  1. RENVELA [Suspect]
     Active Substance: SEVELAMER CARBONATE
     Indication: HYPERPHOSPHATAEMIA
     Dosage: 3 PILLS WITH A MEAL AND ONE WITH A SNACK
     Dates: start: 2013

REACTIONS (2)
  - Dialysis [Unknown]
  - Therapeutic response decreased [Unknown]
